FAERS Safety Report 9338924 (Version 2)
Quarter: 2013Q3

REPORT INFORMATION
  Report Type: Spontaneous
  Country: FR (occurrence: FR)
  Receive Date: 20130610
  Receipt Date: 20130903
  Transmission Date: 20140515
  Serious: Yes (Hospitalization)
  Sender: FDA-Public Use
  Company Number: FR-PFIZER INC-2013170987

PATIENT
  Age: 53 Year
  Sex: Female

DRUGS (9)
  1. ATARAX [Suspect]
     Dosage: 25 MG, 2X/DAY
     Route: 048
     Dates: start: 20121207, end: 20130125
  2. MIRTAZAPINE [Suspect]
     Dosage: 1.5 IU, DAILY
     Route: 048
     Dates: start: 20130107, end: 20130125
  3. ALPRAZOLAM [Suspect]
     Dosage: 3 IU, DAILY
     Route: 048
     Dates: start: 20121130, end: 20130125
  4. RISPERDAL [Suspect]
     Dosage: 4 MG, DAILY
     Route: 048
     Dates: start: 20121218, end: 20130121
  5. LEPTICUR [Suspect]
     Dosage: 10 MG, 2X/DAY
     Route: 048
     Dates: start: 20130111, end: 20130125
  6. THERALENE [Suspect]
     Dosage: 20 GTT, DAILY
     Route: 048
     Dates: start: 20121207, end: 20130125
  7. PROPRANOLOL [Concomitant]
     Dosage: UNK
  8. HEPTAMINOL [Concomitant]
     Dosage: UNK
  9. NEO-MERCAZOLE [Concomitant]
     Dosage: UNK

REACTIONS (1)
  - Urinary retention [Recovered/Resolved]
